FAERS Safety Report 7232400-9 (Version None)
Quarter: 2011Q1

REPORT INFORMATION
  Report Type: 
  Country: None (occurrence: None)
  Receive Date: 20110119
  Receipt Date: 20110111
  Transmission Date: 20110831
  Serious: Yes (Other)
  Sender: FDA-Public Use
  Company Number: BR-ASTELLAS-2010US005338

PATIENT

DRUGS (7)
  1. TACROLIMUS [Suspect]
     Indication: RENAL TRANSPLANT
     Dosage: 3 MG DAILY - FREQUENCY BID
     Route: 048
     Dates: start: 20100213
  2. TACROLIMUS [Suspect]
     Dosage: 2 MG, UID/QD
     Route: 048
     Dates: start: 20110106
  3. TACROLIMUS [Suspect]
     Dosage: 3 MG, UID/QD
     Route: 048
     Dates: start: 20101214, end: 20110105
  4. PREDNISONE [Concomitant]
     Indication: RENAL TRANSPLANT
     Dosage: 5 MG, UID/QD
     Route: 048
     Dates: start: 20101111
  5. MYCOPHENOLATE SODIUM [Concomitant]
     Indication: RENAL TRANSPLANT
     Dosage: 720 MG, BID
     Route: 048
     Dates: start: 20100617, end: 20110105
  6. MYCOPHENOLATE SODIUM [Concomitant]
     Dosage: 1082 MG, UID/QD
     Route: 048
     Dates: start: 20110106
  7. TACROLIMUS [Suspect]
     Dosage: 4 MG, UID/QD
     Route: 048
     Dates: end: 20101213

REACTIONS (3)
  - POLYOMAVIRUS-ASSOCIATED NEPHROPATHY [None]
  - RENAL TUBULAR ATROPHY [None]
  - KIDNEY FIBROSIS [None]
